FAERS Safety Report 18315063 (Version 1)
Quarter: 2020Q3

REPORT INFORMATION
  Report Type: Spontaneous
  Country: IT (occurrence: IT)
  Receive Date: 20200926
  Receipt Date: 20200926
  Transmission Date: 20201103
  Serious: Yes (Other)
  Sender: FDA-Public Use
  Company Number: IT-CELLTRION INC.-2020IT027843

PATIENT

DRUGS (4)
  1. CARBOPLATIN. [Suspect]
     Active Substance: CARBOPLATIN
     Indication: SALIVARY GLAND CANCER
     Dosage: SIX CYCLES, SECOND LINE
  2. TRASTUZUMAB (UNKNOWN) [Suspect]
     Active Substance: TRASTUZUMAB
     Indication: SALIVARY GLAND CANCER
     Dosage: LOADING DOSE OF 4 MG/KG, THEN 2 MG/KG, FOR SIX CYCLES, SECOND LINE
  3. PACLITAXEL. [Suspect]
     Active Substance: PACLITAXEL
     Indication: SALIVARY GLAND CANCER
     Dosage: 80 MG/M2, SIX CYCLES, SECOND LINE
  4. TRASTUZUMAB (UNKNOWN) [Suspect]
     Active Substance: TRASTUZUMAB
     Dosage: 6 MG/KG, 3?WEEKLY FOR 10 MONTHS

REACTIONS (10)
  - Anaemia [Unknown]
  - Epilepsy [Unknown]
  - Cardiac dysfunction [Unknown]
  - Asthenia [Unknown]
  - Off label use [Unknown]
  - Therapy partial responder [Unknown]
  - Ejection fraction decreased [Unknown]
  - Central nervous system lesion [Unknown]
  - Headache [Unknown]
  - Drug ineffective for unapproved indication [Unknown]

NARRATIVE: CASE EVENT DATE: 201912
